FAERS Safety Report 17421346 (Version 1)
Quarter: 2020Q1

REPORT INFORMATION
  Report Type: Report from Study
  Country: CA (occurrence: CA)
  Receive Date: 20200214
  Receipt Date: 20200214
  Transmission Date: 20200409
  Serious: Yes (Other)
  Sender: FDA-Public Use
  Company Number: CA-ROCHE-2544746

PATIENT
  Age: 53 Year
  Sex: Male

DRUGS (1)
  1. RANIBIZUMAB. [Suspect]
     Active Substance: RANIBIZUMAB
     Indication: NEOVASCULAR AGE-RELATED MACULAR DEGENERATION
     Dosage: 0.5 MG
     Route: 065
     Dates: start: 20191112

REACTIONS (1)
  - Subretinal fluid [Recovered/Resolved]

NARRATIVE: CASE EVENT DATE: 20191217
